FAERS Safety Report 23077668 (Version 6)
Quarter: 2024Q4

REPORT INFORMATION
  Report Type: Report from Study
  Country: MX (occurrence: MX)
  Receive Date: 20231018
  Receipt Date: 20241008
  Transmission Date: 20250114
  Serious: Yes (Hospitalization, Other)
  Sender: TAKEDA
  Company Number: MX-TAKEDA-MX202011735

PATIENT
  Age: 7 Year
  Sex: Male
  Weight: 24 kg

DRUGS (7)
  1. IDURSULFASE [Suspect]
     Active Substance: IDURSULFASE
     Indication: Mucopolysaccharidosis II
     Dosage: 2 DOSAGE FORM, 1/WEEK
     Route: 042
     Dates: start: 20180420
  2. IDURSULFASE [Suspect]
     Active Substance: IDURSULFASE
     Dosage: 2 DOSAGE FORM, 1/WEEK
     Route: 042
     Dates: start: 201805
  3. IDURSULFASE [Suspect]
     Active Substance: IDURSULFASE
     Dosage: 12 MILLIGRAM
     Route: 042
  4. IDURSULFASE [Suspect]
     Active Substance: IDURSULFASE
     Dosage: 2 DOSAGE FORM, 1/WEEK
     Route: 042
  5. LORATADINE [Concomitant]
     Active Substance: LORATADINE
     Indication: Mucopolysaccharidosis II
     Dosage: 10 MILLIGRAM, QD
     Route: 065
     Dates: start: 20200312
  6. RISPERIDONE [Concomitant]
     Active Substance: RISPERIDONE
     Dosage: 1 MILLILITER, QD
     Route: 065
     Dates: start: 202003
  7. ALBUTEROL [Concomitant]
     Active Substance: ALBUTEROL
     Dosage: UNK
     Route: 050

REACTIONS (17)
  - Choking [Recovering/Resolving]
  - Dyspnoea [Recovering/Resolving]
  - Malaise [Recovering/Resolving]
  - Abdominal pain upper [Recovering/Resolving]
  - Circumstance or information capable of leading to medication error [Unknown]
  - Nasopharyngitis [Not Recovered/Not Resolved]
  - Insomnia [Not Recovered/Not Resolved]
  - Abdominal discomfort [Not Recovered/Not Resolved]
  - Restlessness [Not Recovered/Not Resolved]
  - Influenza [Not Recovered/Not Resolved]
  - Illness [Recovering/Resolving]
  - Product availability issue [Recovered/Resolved]
  - Product dose omission issue [Not Recovered/Not Resolved]
  - Inappropriate schedule of product administration [Unknown]
  - Cough [Recovered/Resolved]
  - Diarrhoea [Not Recovered/Not Resolved]
  - Pyrexia [Recovered/Resolved]

NARRATIVE: CASE EVENT DATE: 20200318
